FAERS Safety Report 6113145-5 (Version None)
Quarter: 2009Q1

REPORT INFORMATION
  Report Type: 
  Country: None (occurrence: None)
  Receive Date: 20090312
  Receipt Date: 20090305
  Transmission Date: 20090719
  Serious: Yes (Hospitalization, Other)
  Sender: FDA-Public Use
  Company Number: CA-ELI_LILLY_AND_COMPANY-CA200903001350

PATIENT
  Sex: Female

DRUGS (1)
  1. HUMAN INSULIN (RDNA ORIGIN) [Suspect]
     Dosage: UNK, UNK
     Dates: start: 19740101

REACTIONS (11)
  - ACCIDENT [None]
  - ANXIETY [None]
  - BLINDNESS [None]
  - BLOOD GLUCOSE INCREASED [None]
  - CATHETER RELATED COMPLICATION [None]
  - CATHETER RELATED INFECTION [None]
  - CRYING [None]
  - FEAR [None]
  - HAEMODIALYSIS [None]
  - PAIN [None]
  - STRESS [None]
